FAERS Safety Report 8305345-0 (Version None)
Quarter: 2012Q2

REPORT INFORMATION
  Report Type: 
  Country: None (occurrence: None)
  Receive Date: 20120423
  Receipt Date: 20120417
  Transmission Date: 20120825
  Serious: Yes (Other)
  Sender: FDA-Public Use
  Company Number: US-SANOFI-AVENTIS-2012SA017682

PATIENT
  Sex: Female

DRUGS (7)
  1. METFORMIN HCL [Concomitant]
  2. HYZAAR [Concomitant]
  3. SOLOSTAR [Suspect]
     Dates: end: 20100101
  4. LANTUS [Suspect]
     Route: 058
     Dates: end: 20100101
  5. BYETTA [Suspect]
     Route: 065
  6. METAMUCIL-2 [Concomitant]
  7. GLYBURIDE [Concomitant]

REACTIONS (2)
  - WEIGHT DECREASED [None]
  - GLYCOSYLATED HAEMOGLOBIN INCREASED [None]
